FAERS Safety Report 8437126 (Version 5)
Quarter: 2013Q2

REPORT INFORMATION
  Report Type: Spontaneous
  Country: FR (occurrence: FR)
  Receive Date: 20120302
  Receipt Date: 20130426
  Transmission Date: 20140414
  Serious: Yes (Disabling, Other)
  Sender: FDA-Public Use
  Company Number: FR-JNJFOC-20120212890

PATIENT
  Age: 55 Year
  Sex: Male
  Weight: 45 kg

DRUGS (16)
  1. INTELENCE [Suspect]
     Indication: HIV INFECTION
     Route: 048
     Dates: start: 20120120
  2. MOSCONTIN [Concomitant]
     Indication: PAIN
     Dosage: AT LEAST 600MG PER DAY
     Route: 065
  3. UNSPECIFIED COPD MEDICATIONS [Concomitant]
     Indication: CHRONIC OBSTRUCTIVE PULMONARY DISEASE
     Route: 055
  4. ZIAGEN [Concomitant]
     Indication: HIV INFECTION
     Route: 048
     Dates: start: 20070206
  5. ISENTRESS [Concomitant]
     Indication: HIV INFECTION
     Route: 048
     Dates: start: 20090311
  6. ZELITREX [Concomitant]
     Indication: ANTIVIRAL PROPHYLAXIS
     Route: 048
  7. UVEDOSE [Concomitant]
     Route: 048
  8. TOCO [Concomitant]
     Dosage: ON THE MORNING
     Route: 065
  9. SYMBICORT [Concomitant]
     Route: 065
  10. PHYSIOTENS [Concomitant]
     Dosage: ON THE MORNING
     Route: 048
  11. OSFOLATE [Concomitant]
     Dosage: ON THE MORNING
     Route: 048
  12. OROCAL D3 [Concomitant]
     Route: 048
  13. LOCAPRED [Concomitant]
     Route: 061
  14. KETODERM [Concomitant]
     Route: 065
  15. ELUDRIL [Concomitant]
     Route: 048
  16. BACTRIM [Concomitant]
     Dosage: DURING MEAL
     Route: 048

REACTIONS (8)
  - Pain in extremity [Not Recovered/Not Resolved]
  - Local swelling [Not Recovered/Not Resolved]
  - Pain in extremity [Not Recovered/Not Resolved]
  - Gait disturbance [Not Recovered/Not Resolved]
  - Osteonecrosis [Not Recovered/Not Resolved]
  - Off label use [Unknown]
  - Prescribed overdose [Not Recovered/Not Resolved]
  - Erythema [None]
